FAERS Safety Report 18327089 (Version 2)
Quarter: 2020Q4

REPORT INFORMATION
  Report Type: Spontaneous
  Country: US (occurrence: US)
  Receive Date: 20200929
  Receipt Date: 20201008
  Transmission Date: 20210113
  Serious: Yes (Hospitalization)
  Sender: FDA-Public Use
  Company Number: US-TEVA-2020-US-1833050

PATIENT
  Age: 80 Year
  Sex: Male

DRUGS (7)
  1. PREDNISOLONE. [Suspect]
     Active Substance: PREDNISOLONE
     Indication: IRITIS
     Dosage: SIX TIMES PER DAY
     Route: 061
     Dates: start: 2018
  2. PREDNISONE. [Suspect]
     Active Substance: PREDNISONE
     Indication: CYSTOID MACULAR OEDEMA
     Dosage: 30 MILLIGRAM DAILY;
     Route: 048
     Dates: start: 2019
  3. PREDNISOLONE. [Suspect]
     Active Substance: PREDNISOLONE
     Indication: CYSTOID MACULAR OEDEMA
     Dosage: FOUR TIMES DAILY IN OD
     Route: 065
     Dates: start: 2019
  4. DORZOLAMIDE /TIMOLOL [Concomitant]
     Indication: GLAUCOMA
     Route: 065
  5. ACETAZOLAMIDE. [Suspect]
     Active Substance: ACETAZOLAMIDE
     Indication: CYSTOID MACULAR OEDEMA
     Route: 048
     Dates: start: 2018, end: 2019
  6. LATANOPROST. [Suspect]
     Active Substance: LATANOPROST
     Indication: GLAUCOMA
     Route: 061
  7. INTERFERON ALPHA-2B [Suspect]
     Active Substance: INTERFERON ALFA-2B
     Indication: CYSTOID MACULAR OEDEMA
     Dosage: DOSE: 1 MIU/ML
     Route: 061
     Dates: start: 2019

REACTIONS (4)
  - Abdominal discomfort [Unknown]
  - Drug ineffective [Unknown]
  - Cystoid macular oedema [Recovered/Resolved]
  - Paraesthesia [Unknown]

NARRATIVE: CASE EVENT DATE: 2018
